FAERS Safety Report 16201848 (Version 1)
Quarter: 2019Q2

REPORT INFORMATION
  Report Type: Spontaneous
  Country: US (occurrence: US)
  Receive Date: 20190415
  Receipt Date: 20190415
  Transmission Date: 20190711
  Serious: Yes (Other)
  Sender: FDA-Public Use
  Company Number: None

PATIENT
  Age: 30 Year
  Sex: Female
  Weight: 94.5 kg

DRUGS (2)
  1. MEDROXYPROGESTERONE 10 MG TABLETS [Suspect]
     Active Substance: MEDROXYPROGESTERONE
     Indication: INFERTILITY
     Dosage: 5 TABLET(S);OTHER FREQUENCY:3 IN AM 2 IN PM;?
     Route: 048
     Dates: start: 20190110, end: 20190408
  2. MEDROXYPROGESTERONE 10 MG TABLETS [Suspect]
     Active Substance: MEDROXYPROGESTERONE
     Indication: ENDOMETRIOSIS
     Dosage: 5 TABLET(S);OTHER FREQUENCY:3 IN AM 2 IN PM;?
     Route: 048
     Dates: start: 20190110, end: 20190408

REACTIONS (6)
  - Emotional disorder [None]
  - Suicidal ideation [None]
  - Anger [None]
  - Screaming [None]
  - Drug withdrawal syndrome [None]
  - Crying [None]

NARRATIVE: CASE EVENT DATE: 20190414
